FAERS Safety Report 10480628 (Version 1)
Quarter: 2014Q3

REPORT INFORMATION
  Report Type: Spontaneous
  Country: US (occurrence: None)
  Receive Date: 20140925
  Receipt Date: 20140925
  Transmission Date: 20150326
  Serious: Yes (Other)
  Sender: FDA-Public Use
  Company Number: 2009S1006468

PATIENT
  Age: 61 Year
  Sex: Female

DRUGS (11)
  1. PHOSPHO-SODA [Suspect]
     Active Substance: SODIUM PHOSPHATE, DIBASIC\SODIUM PHOSPHATE, MONOBASIC
     Indication: COLONOSCOPY
     Route: 048
     Dates: start: 20070402
  2. ALLEGRA (FEXOFENADINE HYDROCHLORIDE) [Concomitant]
  3. DRIXOROL (DEXBROMPHENIRAMINE) [Concomitant]
  4. LEXAPRO [Concomitant]
     Active Substance: ESCITALOPRAM OXALATE
  5. ATENOLOL (ATENOLOL) [Concomitant]
     Active Substance: ATENOLOL
  6. ATIVAN [Concomitant]
     Active Substance: LORAZEPAM
  7. ROZEREM (RAMELTEON) [Concomitant]
  8. LIPITOR [Concomitant]
     Active Substance: ATORVASTATIN CALCIUM
  9. FOSAMAX [Concomitant]
     Active Substance: ALENDRONATE SODIUM
  10. SEROQUEL [Concomitant]
     Active Substance: QUETIAPINE FUMARATE
  11. AMBIEN [Concomitant]
     Active Substance: ZOLPIDEM TARTRATE

REACTIONS (13)
  - Renal tubular necrosis [None]
  - Fatigue [None]
  - Pyrexia [None]
  - Renal failure chronic [None]
  - Acute phosphate nephropathy [None]
  - Gastrointestinal haemorrhage [None]
  - Renal transplant [None]
  - Renal failure acute [None]
  - Nephrocalcinosis [None]
  - Perinephric collection [None]
  - Nephrogenic anaemia [None]
  - Tubulointerstitial nephritis [None]
  - Hypertension [None]

NARRATIVE: CASE EVENT DATE: 20070508
